FAERS Safety Report 4960048-5 (Version None)
Quarter: 2006Q1

REPORT INFORMATION
  Report Type: 
  Country: None (occurrence: None)
  Receive Date: 20060327
  Receipt Date: 20060317
  Transmission Date: 20060701
  Serious: Yes (Hospitalization)
  Sender: FDA-Public Use
  Company Number: S06-USA-01132-01

PATIENT
  Age: 35 Year
  Sex: Female

DRUGS (2)
  1. CELEXA [Suspect]
     Indication: DEPRESSION
  2. PHENERGAN [Suspect]
     Indication: PAIN
     Dates: start: 20060313

REACTIONS (3)
  - DRUG INTERACTION [None]
  - INADEQUATE ANALGESIA [None]
  - PROCEDURAL PAIN [None]
